FAERS Safety Report 8895777 (Version 2)
Quarter: 2012Q4

REPORT INFORMATION
  Report Type: 
  Country: US (occurrence: US)
  Receive Date: 20121108
  Receipt Date: 20121129
  Transmission Date: 20130627
  Serious: Yes (Hospitalization, Other)
  Sender: FDA-Public Use
  Company Number: US-PFIZER INC-2012277203

PATIENT
  Age: 66 Year
  Sex: Female
  Weight: 134 kg

DRUGS (2)
  1. CHAPSTICK OVERNIGHT [Suspect]
     Indication: DRY LIPS
     Dosage: UNK, as needed
     Dates: start: 200908
  2. LISINOPRIL [Concomitant]
     Indication: BLOOD PRESSURE ABNORMAL
     Dosage: 10 mg, 2x/day

REACTIONS (2)
  - Lip and/or oral cavity cancer [Recovered/Resolved]
  - Lip dry [Unknown]
